FAERS Safety Report 13627371 (Version 4)
Quarter: 2017Q3

REPORT INFORMATION
  Report Type: Spontaneous
  Country: US (occurrence: US)
  Receive Date: 20170607
  Receipt Date: 20170912
  Transmission Date: 20171127
  Serious: No
  Sender: FDA-Public Use
  Company Number: US-SHIRE-US201711443

PATIENT
  Sex: Female

DRUGS (1)
  1. XIIDRA [Suspect]
     Active Substance: LIFITEGRAST
     Indication: DRY EYE
     Dosage: 1 GTT (IN BOTH EYES), 2X/DAY:BID
     Route: 047
     Dates: start: 20161028

REACTIONS (3)
  - Visual impairment [Not Recovered/Not Resolved]
  - Vision blurred [Not Recovered/Not Resolved]
  - Instillation site reaction [Not Recovered/Not Resolved]
